FAERS Safety Report 7136137-6 (Version None)
Quarter: 2010Q4

REPORT INFORMATION
  Report Type: 
  Country: None (occurrence: None)
  Receive Date: 20101205
  Receipt Date: 20101122
  Transmission Date: 20110411
  Serious: Yes (Hospitalization)
  Sender: FDA-Public Use
  Company Number: JP-PFIZER INC-2010162931

PATIENT
  Age: 54 Year
  Sex: Female

DRUGS (8)
  1. CELECOXIB [Suspect]
     Dosage: 200 MG, 1X/DAY
     Route: 048
     Dates: end: 20101104
  2. GASMOTIN [Concomitant]
     Dosage: UNK
     Route: 048
     Dates: start: 20100929, end: 20101104
  3. PRAVASTATIN SODIUM [Concomitant]
     Dosage: UNK
     Route: 048
     Dates: start: 20100929, end: 20101104
  4. ACINON [Concomitant]
     Dosage: UNK
     Route: 048
     Dates: start: 20100929, end: 20101104
  5. SELBEX [Concomitant]
     Dosage: UNK
     Route: 048
     Dates: start: 20100929, end: 20101104
  6. MYONAL [Concomitant]
     Dosage: UNK
     Route: 048
     Dates: start: 20100929, end: 20101104
  7. INFLUENZA VIRUS VACCINE POLYVALENT [Concomitant]
     Dosage: UNK
     Dates: start: 20101104
  8. ISODINE [Concomitant]

REACTIONS (1)
  - RESPIRATORY TRACT OEDEMA [None]
